FAERS Safety Report 8521569-1 (Version None)
Quarter: 2012Q3

REPORT INFORMATION
  Report Type: 
  Country: None (occurrence: None)
  Receive Date: 20120719
  Receipt Date: 20120714
  Transmission Date: 20120928
  Serious: Yes (Other)
  Sender: FDA-Public Use
  Company Number: PHHY2012HU056344

PATIENT
  Age: 67 Year
  Sex: Female

DRUGS (7)
  1. EXEMESTANE [Concomitant]
  2. DOCETAXEL [Concomitant]
  3. ZOLEDRONIC ACID [Suspect]
     Indication: METASTASES TO BONE
     Dates: start: 20061101
  4. ZOLEDRONIC ACID [Suspect]
  5. FULVESTRANT [Concomitant]
     Dosage: 250 MG, QMO
     Route: 065
     Dates: start: 20081001
  6. FULVESTRANT [Concomitant]
     Dosage: 500 MG, QMO
  7. CHEMOTHERAPEUTICS NOS [Concomitant]

REACTIONS (6)
  - GLOMERULAR FILTRATION RATE DECREASED [None]
  - NEOPLASM MALIGNANT [None]
  - NEOPLASM PROGRESSION [None]
  - CHOLELITHIASIS [None]
  - BONE PAIN [None]
  - ALOPECIA [None]
